FAERS Safety Report 8345334-3 (Version None)
Quarter: 2012Q2

REPORT INFORMATION
  Report Type: 
  Country: None (occurrence: None)
  Receive Date: 20120504
  Receipt Date: 20120425
  Transmission Date: 20120825
  Serious: Yes (Hospitalization, Other)
  Sender: FDA-Public Use
  Company Number: ACO_29323_2012

PATIENT
  Age: 56 Year
  Sex: Male

DRUGS (6)
  1. AMPYRA [Suspect]
     Indication: MULTIPLE SCLEROSIS
     Dosage: 10 MG, BID, ORAL
     Route: 048
  2. LORTAB [Concomitant]
  3. COUMADIN [Concomitant]
  4. BACLOFEN [Concomitant]
  5. SIMVASTATIN [Concomitant]
  6. VALIUM [Concomitant]

REACTIONS (1)
  - MULTIPLE MYELOMA [None]
